FAERS Safety Report 16318460 (Version 1)
Quarter: 2019Q2

REPORT INFORMATION
  Report Type: Spontaneous
  Country: GB (occurrence: GB)
  Receive Date: 20190516
  Receipt Date: 20190516
  Transmission Date: 20190711
  Serious: Yes (Death)
  Sender: FDA-Public Use
  Company Number: GB-ROCHE-597568

PATIENT
  Sex: Female

DRUGS (22)
  1. FOLINIC ACID [Concomitant]
     Active Substance: LEUCOVORIN
     Route: 065
  2. DOXORUBICIN [Suspect]
     Active Substance: DOXORUBICIN
     Indication: NON-HODGKIN^S LYMPHOMA
     Dosage: INDICATION ALSO REPORTED AS RENAL DIFFUSE LARGE B CELL LYMPHOMA?01/MAR/2008, RECEIVED THERAPY WITH D
     Route: 065
     Dates: start: 20071219, end: 20080518
  3. DOXORUBICIN [Suspect]
     Active Substance: DOXORUBICIN
     Indication: DIFFUSE LARGE B-CELL LYMPHOMA
  4. RITUXIMAB. [Suspect]
     Active Substance: RITUXIMAB
     Indication: DIFFUSE LARGE B-CELL LYMPHOMA
     Dosage: INDICATION ALSO REPORTED AS: RENAL DIFFUSE LARGE B CELL LYMPHOMA. STRENGTH: 500MG AND 2X 100MG, ON 0
     Route: 041
     Dates: start: 20071219, end: 20080518
  5. VINCRISTINE [Suspect]
     Active Substance: VINCRISTINE
     Indication: NON-HODGKIN^S LYMPHOMA
     Dosage: INDICATION ALSO REPORTED AS RENAL DIFFUSE LARGE B CELL LYMPHOMA?ON 01/MAR/2008, RECEIVED THERAPY WIT
     Route: 065
     Dates: start: 20071219, end: 20080518
  6. PREDNISONE. [Suspect]
     Active Substance: PREDNISONE
     Indication: DIFFUSE LARGE B-CELL LYMPHOMA
  7. CYCLOPHOSPHAMIDE. [Suspect]
     Active Substance: CYCLOPHOSPHAMIDE
     Indication: NON-HODGKIN^S LYMPHOMA
     Dosage: INDICATION ALSO REPORTED AS RENAL DIFFUSE LARGE B CELL LYMPHOMA?ON 01/MAR/2008, RECEIVED THERAPY WIT
     Route: 065
     Dates: start: 20071219, end: 20080518
  8. LANSOPRAZOLE. [Concomitant]
     Active Substance: LANSOPRAZOLE
     Route: 065
  9. RITUXIMAB. [Suspect]
     Active Substance: RITUXIMAB
     Indication: NON-HODGKIN^S LYMPHOMA
  10. AMLODIPINE [Concomitant]
     Active Substance: AMLODIPINE BESYLATE
     Route: 065
  11. SULFAMETHOXAZOLE/TRIMETHOPRIM [Concomitant]
     Active Substance: SULFAMETHOXAZOLE\TRIMETHOPRIM
     Route: 065
  12. METHOTREXATE. [Suspect]
     Active Substance: METHOTREXATE
     Indication: NON-HODGKIN^S LYMPHOMA
     Dosage: INDICATION ALSO REPORTED AS: RENAL DIFFUSE LARGE B CELL LYMPHOMA?ON 01/MAR/2008, RECEIVED THERAPY WI
     Route: 037
     Dates: start: 20080314, end: 20080518
  13. SIMVASTATIN. [Concomitant]
     Active Substance: SIMVASTATIN
     Route: 065
  14. SULFAMETHOXAZOLE [Concomitant]
     Active Substance: SULFAMETHOXAZOLE
  15. VINCRISTINE [Suspect]
     Active Substance: VINCRISTINE
     Indication: DIFFUSE LARGE B-CELL LYMPHOMA
  16. CYCLOPHOSPHAMIDE. [Suspect]
     Active Substance: CYCLOPHOSPHAMIDE
     Indication: DIFFUSE LARGE B-CELL LYMPHOMA
  17. FLUCONAZOLE. [Concomitant]
     Active Substance: FLUCONAZOLE
     Route: 065
  18. SEPTIN [Concomitant]
     Dosage: REPORTED AS M/W/F
     Route: 065
  19. GANCICLOVIR SODIUM. [Concomitant]
     Active Substance: GANCICLOVIR SODIUM
     Route: 065
  20. PREDNISONE. [Suspect]
     Active Substance: PREDNISONE
     Indication: NON-HODGKIN^S LYMPHOMA
     Dosage: INDICATION ALSO REPORTED AS RENAL DIFFUSE LARGE B CELL LYMPHOMA?ON 01/MAR/20008, RECEIVED THERAPY WI
     Route: 065
     Dates: start: 20071219, end: 20080518
  21. CALCIUM FOLINATE [Concomitant]
     Active Substance: LEUCOVORIN CALCIUM
     Route: 065
  22. TRIMETHOPRIM. [Concomitant]
     Active Substance: TRIMETHOPRIM

REACTIONS (1)
  - Progressive multifocal leukoencephalopathy [Fatal]
